FAERS Safety Report 18103717 (Version 1)
Quarter: 2020Q3

REPORT INFORMATION
  Report Type: Spontaneous
  Country: US (occurrence: US)
  Receive Date: 20200803
  Receipt Date: 20200803
  Transmission Date: 20201103
  Serious: No
  Sender: FDA-Public Use
  Company Number: US-SA-2020SA200468

PATIENT

DRUGS (4)
  1. VASELINE [PARAFFIN] [Concomitant]
     Active Substance: PARAFFIN
  2. CLOBETASOL [Concomitant]
     Active Substance: CLOBETASOL
  3. MOMETASONE FUROATE. [Concomitant]
     Active Substance: MOMETASONE FUROATE
  4. DUPIXENT [Suspect]
     Active Substance: DUPILUMAB
     Indication: ILLNESS
     Dosage: 300 MG, QOW
     Route: 058
     Dates: start: 202007

REACTIONS (6)
  - Product use in unapproved indication [Unknown]
  - Skin exfoliation [Unknown]
  - Dry skin [Unknown]
  - Pruritus [Unknown]
  - Skin weeping [Unknown]
  - Skin fissures [Unknown]

NARRATIVE: CASE EVENT DATE: 202007
